FAERS Safety Report 5657558-4 (Version None)
Quarter: 2008Q1

REPORT INFORMATION
  Report Type: 
  Country: None (occurrence: None)
  Receive Date: 20080310
  Receipt Date: 20080305
  Transmission Date: 20080703
  Serious: Yes (Life-Threatening, Hospitalization, Other)
  Sender: FDA-Public Use
  Company Number: PHHY2008JP01409

PATIENT
  Age: 58 Year
  Sex: Female
  Weight: 54 kg

DRUGS (6)
  1. LOSARTAN POTASSIUM [Suspect]
     Indication: HYPERTENSION
     Route: 048
     Dates: start: 20070201, end: 20070528
  2. ALOSENN [Suspect]
     Indication: CONSTIPATION
     Route: 048
     Dates: start: 20070201, end: 20070528
  3. CEFAMEZIN [Concomitant]
  4. PREDONINE [Concomitant]
     Dosage: UNK, UNK
     Route: 048
     Dates: start: 20070824, end: 20070825
  5. AMLODIN [Suspect]
     Indication: HYPERTENSION
     Dosage: UNK, UNK
     Route: 048
     Dates: start: 20070201, end: 20070821
  6. DIOVAN [Suspect]
     Indication: HYPERTENSION
     Route: 048
     Dates: start: 20070528, end: 20070821

REACTIONS (19)
  - ALANINE AMINOTRANSFERASE INCREASED [None]
  - ALTERED STATE OF CONSCIOUSNESS [None]
  - ASPARTATE AMINOTRANSFERASE INCREASED [None]
  - BLOOD CREATINE PHOSPHOKINASE INCREASED [None]
  - BLOOD FIBRINOGEN INCREASED [None]
  - BLOOD LACTATE DEHYDROGENASE INCREASED [None]
  - C-REACTIVE PROTEIN INCREASED [None]
  - CEREBRAL ARTERY OCCLUSION [None]
  - CEREBRAL INFARCTION [None]
  - DISSEMINATED INTRAVASCULAR COAGULATION [None]
  - HEMIPLEGIA [None]
  - PANCYTOPENIA [None]
  - PERCUTANEOUS CORONARY INTERVENTION [None]
  - PYREXIA [None]
  - RASH [None]
  - SEPSIS [None]
  - SKIN EROSION [None]
  - TOXIC EPIDERMAL NECROLYSIS [None]
  - WHITE BLOOD CELL COUNT DECREASED [None]
